FAERS Safety Report 24056538 (Version 6)
Quarter: 2024Q3

REPORT INFORMATION
  Report Type: Spontaneous
  Country: US (occurrence: US)
  Receive Date: 20240705
  Receipt Date: 20240725
  Transmission Date: 20241017
  Serious: Yes (Death, Other)
  Sender: ROCHE
  Company Number: US-ROCHE-10000013467

PATIENT
  Age: 62 Year
  Sex: Female

DRUGS (1)
  1. CATHFLO ACTIVASE [Suspect]
     Active Substance: ALTEPLASE
     Indication: Product used for unknown indication
     Route: 065

REACTIONS (7)
  - Vascular device infection [Unknown]
  - Ascites [Unknown]
  - Pain [Unknown]
  - Pneumothorax [Unknown]
  - Pulmonary oedema [Unknown]
  - Catheter site discolouration [Unknown]
  - Neoplasm malignant [Fatal]

NARRATIVE: CASE EVENT DATE: 20231001
